FAERS Safety Report 7668416-8 (Version None)
Quarter: 2011Q3

REPORT INFORMATION
  Report Type: 
  Country: None (occurrence: None)
  Receive Date: 20110808
  Receipt Date: 20110725
  Transmission Date: 20111222
  Serious: Yes (Hospitalization, Other)
  Sender: FDA-Public Use
  Company Number: US-ELI_LILLY_AND_COMPANY-US201108000412

PATIENT
  Sex: Female

DRUGS (7)
  1. FORTEO [Suspect]
     Dosage: 20 UG, QD
  2. ANTIBIOTICS [Concomitant]
  3. VITAMIN TAB [Concomitant]
  4. DILAUDID [Concomitant]
  5. FORTEO [Suspect]
     Indication: OSTEOPOROSIS
     Dosage: 20 UG, QD
  6. OXYCONTIN [Concomitant]
     Dosage: 60 MG, UNKNOWN
  7. KLONOPIN [Concomitant]

REACTIONS (4)
  - HIP ARTHROPLASTY [None]
  - SURGERY [None]
  - HOSPITALISATION [None]
  - THERAPY CESSATION [None]
